FAERS Safety Report 18367259 (Version 1)
Quarter: 2020Q4

REPORT INFORMATION
  Report Type: Spontaneous
  Country: TR (occurrence: TR)
  Receive Date: 20201009
  Receipt Date: 20201009
  Transmission Date: 20210114
  Serious: Yes (Hospitalization, Other)
  Sender: FDA-Public Use
  Company Number: TR-PFIZER INC-2020386362

PATIENT
  Age: 64 Year
  Sex: Female

DRUGS (1)
  1. SUTENT [Suspect]
     Active Substance: SUNITINIB MALATE
     Indication: CLEAR CELL RENAL CELL CARCINOMA
     Dosage: 50 MG EVERY 6 WEEKS FOR A PERIOD 4 WEEKS
     Route: 048
     Dates: start: 20170823

REACTIONS (15)
  - Second primary malignancy [Recovered/Resolved]
  - Taste disorder [Unknown]
  - Ageusia [Unknown]
  - Blood thyroid stimulating hormone increased [Not Recovered/Not Resolved]
  - Asthenia [Unknown]
  - Decreased appetite [Recovering/Resolving]
  - Weight decreased [Recovered/Resolved]
  - Blood creatinine increased [Unknown]
  - Yellow skin [Unknown]
  - Hypertension [Unknown]
  - Teratoma [Recovered/Resolved]
  - Neoplasm progression [Unknown]
  - Haemoglobin decreased [Unknown]
  - Diarrhoea [Unknown]
  - Rosai-Dorfman syndrome [Unknown]

NARRATIVE: CASE EVENT DATE: 20170906
